FAERS Safety Report 25388356 (Version 1)
Quarter: 2025Q2

REPORT INFORMATION
  Report Type: Report from Study
  Country: CN (occurrence: CN)
  Receive Date: 20250603
  Receipt Date: 20250603
  Transmission Date: 20250717
  Serious: Yes (Other)
  Sender: ROCHE
  Company Number: CN-ROCHE-10000291932

PATIENT

DRUGS (11)
  1. ATEZOLIZUMAB [Suspect]
     Active Substance: ATEZOLIZUMAB
     Indication: Small cell lung cancer
     Route: 065
  2. SINTILIMAB [Suspect]
     Active Substance: SINTILIMAB
     Indication: Non-small cell lung cancer
     Route: 065
  3. CAMRELIZUMAB [Suspect]
     Active Substance: CAMRELIZUMAB
     Indication: Non-small cell lung cancer
     Route: 065
  4. PEMBROLIZUMAB [Suspect]
     Active Substance: PEMBROLIZUMAB
     Indication: Renal cell carcinoma
     Route: 065
  5. TISLELIZUMAB [Suspect]
     Active Substance: TISLELIZUMAB
     Indication: Neoplasm malignant
     Route: 065
  6. TORIPALIMAB [Suspect]
     Active Substance: TORIPALIMAB
     Indication: Neoplasm malignant
     Route: 065
  7. SERPLULIMAB [Suspect]
     Active Substance: SERPLULIMAB
     Indication: Neoplasm malignant
     Route: 065
  8. PENPULIMAB [Suspect]
     Active Substance: PENPULIMAB
     Indication: Neoplasm malignant
     Route: 065
  9. DURVALUMAB [Suspect]
     Active Substance: DURVALUMAB
     Indication: Neoplasm malignant
     Route: 065
  10. SUGEMALIMAB [Suspect]
     Active Substance: SUGEMALIMAB
     Indication: Neoplasm malignant
     Route: 065
  11. NIVOLUMAB [Suspect]
     Active Substance: NIVOLUMAB
     Indication: Neoplasm malignant
     Route: 065

REACTIONS (38)
  - Endocrine toxicity [Unknown]
  - Hypothyroidism [Unknown]
  - Hyperthyroidism [Unknown]
  - Hyperglycaemia [Unknown]
  - Hypophysitis [Unknown]
  - Adrenal insufficiency [Unknown]
  - Hepatotoxicity [Unknown]
  - Aspartate aminotransferase increased [Unknown]
  - Alanine aminotransferase increased [Unknown]
  - Blood bilirubin increased [Unknown]
  - Haematotoxicity [Unknown]
  - Haemolytic anaemia [Unknown]
  - Thrombocytopenia [Unknown]
  - Aplastic anaemia [Unknown]
  - Skin toxicity [Unknown]
  - Rash [Unknown]
  - Pruritus [Unknown]
  - Haemangioma of skin [Unknown]
  - Papule [Unknown]
  - Pneumonia [Unknown]
  - Pulmonary toxicity [Unknown]
  - Pneumonitis [Unknown]
  - Musculoskeletal toxicity [Unknown]
  - Myalgia [Unknown]
  - Arthralgia [Unknown]
  - Cardiotoxicity [Unknown]
  - Neurotoxicity [Unknown]
  - Neurotoxicity [Unknown]
  - Nephropathy toxic [Unknown]
  - Blood creatinine increased [Unknown]
  - Cystitis [Unknown]
  - Gastrointestinal toxicity [Unknown]
  - Colitis [Unknown]
  - Pancreatitis [Unknown]
  - Constipation [Unknown]
  - Ocular toxicity [Unknown]
  - Ototoxicity [Unknown]
  - Transfusion reaction [Unknown]
